FAERS Safety Report 15029424 (Version 1)
Quarter: 2018Q2

REPORT INFORMATION
  Report Type: Report from Study
  Country: US (occurrence: US)
  Receive Date: 20180619
  Receipt Date: 20180619
  Transmission Date: 20180711
  Serious: Yes (Hospitalization, Other)
  Sender: FDA-Public Use
  Company Number: PHEH2018US023903

PATIENT
  Age: 69 Year
  Sex: Male

DRUGS (1)
  1. ENTRESTO [Suspect]
     Active Substance: SACUBITRIL\VALSARTAN
     Indication: HEART VALVE REPLACEMENT
     Dosage: UNK
     Route: 065

REACTIONS (5)
  - Blood pressure decreased [Unknown]
  - Atrial fibrillation [Unknown]
  - Cardiac flutter [Unknown]
  - Product use in unapproved indication [Unknown]
  - Heart rate increased [Unknown]

NARRATIVE: CASE EVENT DATE: 201608
